FAERS Safety Report 12667477 (Version 2)
Quarter: 2016Q3

REPORT INFORMATION
  Report Type: Spontaneous
  Country: US (occurrence: US)
  Receive Date: 20160819
  Receipt Date: 20160822
  Transmission Date: 20161109
  Serious: Yes (Other)
  Sender: FDA-Public Use
  Company Number: US-PFIZER INC-2016393004

PATIENT
  Age: 84 Year
  Sex: Female

DRUGS (1)
  1. PHENYTOIN SODIUM. [Suspect]
     Active Substance: PHENYTOIN SODIUM
     Indication: SEIZURE
     Dosage: 200 MG, 1X/DAY EVERY NIGHT
     Route: 048
     Dates: end: 201505

REACTIONS (4)
  - Drug ineffective [Unknown]
  - Seizure [Unknown]
  - Condition aggravated [Unknown]
  - Malabsorption [Unknown]
